FAERS Safety Report 6674560-4 (Version None)
Quarter: 2010Q2

REPORT INFORMATION
  Report Type: 
  Country: None (occurrence: None)
  Receive Date: 20100409
  Receipt Date: 20100405
  Transmission Date: 20101027
  Serious: Yes (Life-Threatening, Hospitalization, Disabling, Other)
  Sender: FDA-Public Use
  Company Number: JP-BAYER-200813177BYL

PATIENT
  Age: 78 Year
  Sex: Male
  Weight: 60 kg

DRUGS (9)
  1. NEXAVAR [Suspect]
     Indication: RENAL CELL CARCINOMA
     Dosage: TOTAL DAILY DOSE: 800 MG  UNIT DOSE: 200 MG
     Route: 048
     Dates: start: 20081204, end: 20081215
  2. MAGMITT [Concomitant]
     Indication: CONSTIPATION
     Dosage: SINCE BEFORE NEXAVAR ADMINISTRATION
     Route: 048
     Dates: end: 20081204
  3. MYSLEE [Concomitant]
     Indication: INSOMNIA
     Dosage: SINCE BEFORE NEXAVAR ADMINISTRATION
     Route: 048
     Dates: end: 20081228
  4. ASPIRIN [Concomitant]
     Dosage: UNIT DOSE: 100 MG
     Route: 048
     Dates: start: 20081216, end: 20081217
  5. HEPARIN NA LOCK [Concomitant]
     Indication: ELECTIVE PROCEDURE
     Route: 042
     Dates: start: 20081216, end: 20081227
  6. FLUMARIN [Concomitant]
     Route: 042
     Dates: start: 20081221, end: 20081224
  7. YODEL-S [Concomitant]
     Indication: CONSTIPATION
     Route: 048
     Dates: start: 20081225, end: 20081225
  8. MEVALOTIN [Concomitant]
     Indication: HYPERLIPIDAEMIA
     Dosage: UNIT DOSE: 10 MG
     Route: 048
     Dates: start: 20081231
  9. CANDESARTAN CILEXETIL [Concomitant]
     Route: 048
     Dates: start: 20081224, end: 20081230

REACTIONS (8)
  - ARRHYTHMIA [None]
  - BACK PAIN [None]
  - COORDINATION ABNORMAL [None]
  - DIARRHOEA [None]
  - DYSPHONIA [None]
  - GASTROINTESTINAL HAEMORRHAGE [None]
  - INSOMNIA [None]
  - MYOCARDIAL INFARCTION [None]
